FAERS Safety Report 18312565 (Version 1)
Quarter: 2020Q3

REPORT INFORMATION
  Report Type: Spontaneous
  Country: US (occurrence: US)
  Receive Date: 20200917
  Receipt Date: 20200917
  Transmission Date: 20201103
  Serious: Yes (Death)
  Sender: FDA-Public Use
  Company Number: None

PATIENT
  Age: 65 Year
  Sex: Male

DRUGS (2)
  1. ARBIDOL [Suspect]
     Active Substance: UMIFENOVIR
     Indication: COVID-19
     Dates: start: 2020
  2. METHYLPREDNISOLONE. [Suspect]
     Active Substance: METHYLPREDNISOLONE
     Indication: COVID-19

REACTIONS (5)
  - Pneumothorax [None]
  - Sudden death [None]
  - Disseminated intravascular coagulation [None]
  - Diarrhoea [None]
  - Respiratory failure [None]
